FAERS Safety Report 5225983-1 (Version None)
Quarter: 2007Q1

REPORT INFORMATION
  Report Type: 
  Country: None (occurrence: None)
  Receive Date: 20070201
  Receipt Date: 20070122
  Transmission Date: 20070707
  Serious: Yes (Disabling)
  Sender: FDA-Public Use
  Company Number: GB-BAXTER-2006BH014861

PATIENT
  Age: 43 Year
  Sex: Female

DRUGS (1)
  1. TISSUCOL/TISSEEL KIT STIM4 [Suspect]
     Indication: FACE LIFT
     Route: 065
     Dates: start: 20061118, end: 20061118

REACTIONS (1)
  - PSEUDOMONAS INFECTION [None]
